FAERS Safety Report 13382169 (Version 3)
Quarter: 2017Q2

REPORT INFORMATION
  Report Type: Spontaneous
  Country: DE (occurrence: DE)
  Receive Date: 20170329
  Receipt Date: 20170425
  Transmission Date: 20170830
  Serious: Yes (Other)
  Sender: FDA-Public Use
  Company Number: DE-TEVA-753681GER

PATIENT
  Age: 75 Year
  Sex: Female

DRUGS (4)
  1. TAMOXIFEN [Concomitant]
     Active Substance: TAMOXIFEN
     Indication: OVARIAN CANCER
     Dosage: 20 MILLIGRAM DAILY;
     Dates: start: 201510, end: 201605
  2. CARBOPLATIN. [Concomitant]
     Active Substance: CARBOPLATIN
     Indication: NEOPLASM PROGRESSION
     Dosage: AUC 3 ON DAY 2 AFTER ECHT PIPAC
     Route: 042
     Dates: start: 201605
  3. CISPLATIN. [Suspect]
     Active Substance: CISPLATIN
     Indication: OVARIAN CANCER
     Dosage: EVERY 5-12 WEEKS OF PIPAC, AT 12 MMHG
     Route: 033
     Dates: start: 201410, end: 201608
  4. DOXORUBICIN [Suspect]
     Active Substance: DOXORUBICIN
     Indication: OVARIAN CANCER
     Dosage: EVERY 5-12 WEEKS OF PIPAC, AT 12 MMHG
     Route: 033
     Dates: start: 201410, end: 201608

REACTIONS (4)
  - Off label use [Unknown]
  - Abdominal pain [Unknown]
  - Pyrexia [Unknown]
  - Pleural effusion [Unknown]
